FAERS Safety Report 7475174-9 (Version None)
Quarter: 2011Q2

REPORT INFORMATION
  Report Type: 
  Country: None (occurrence: None)
  Receive Date: 20110512
  Receipt Date: 20110503
  Transmission Date: 20111010
  Serious: Yes (Other)
  Sender: FDA-Public Use
  Company Number: ES-BRISTOL-MYERS SQUIBB COMPANY-15736713

PATIENT
  Age: 64 Year
  Sex: Male

DRUGS (3)
  1. ATORVASTATIN [Concomitant]
     Indication: DYSLIPIDAEMIA
     Route: 048
     Dates: start: 20091119
  2. ASPIRIN [Concomitant]
     Indication: PROPHYLAXIS
     Dosage: 100MG FILM COATED TABS
     Route: 048
     Dates: start: 20091119
  3. METFORMIN HCL [Suspect]
     Indication: TYPE 2 DIABETES MELLITUS
     Dosage: 850 FILM COATED TAS,2550MG DAILY
     Route: 048
     Dates: start: 20091119, end: 20101218

REACTIONS (2)
  - HYPOGLYCAEMIA [None]
  - ROAD TRAFFIC ACCIDENT [None]
